FAERS Safety Report 6945458-9 (Version None)
Quarter: 2010Q3

REPORT INFORMATION
  Report Type: 
  Country: None (occurrence: None)
  Receive Date: 20100827
  Receipt Date: 20100819
  Transmission Date: 20110219
  Serious: Yes (Other)
  Sender: FDA-Public Use
  Company Number: DE-ROCHE-721286

PATIENT
  Sex: Female
  Weight: 62 kg

DRUGS (3)
  1. XELODA [Suspect]
     Indication: METASTATIC GASTRIC CANCER
     Dosage: ON DAYS 1 - 14 OF EACH 21-DAY-CYCLE
     Route: 048
     Dates: start: 20100607
  2. HERCEPTIN [Concomitant]
     Route: 042
     Dates: start: 20100607
  3. CISPLATIN [Concomitant]
     Route: 042
     Dates: start: 20100607

REACTIONS (2)
  - HAEMOLYTIC ANAEMIA [None]
  - INTERNATIONAL NORMALISED RATIO INCREASED [None]
